FAERS Safety Report 18573952 (Version 1)
Quarter: 2020Q4

REPORT INFORMATION
  Report Type: Spontaneous
  Country: CN (occurrence: CN)
  Receive Date: 20201203
  Receipt Date: 20201203
  Transmission Date: 20210114
  Serious: Yes (Other)
  Sender: FDA-Public Use
  Company Number: CN-APOTEX-2020AP023199

PATIENT
  Age: 82 Year
  Sex: Female
  Weight: 60 kg

DRUGS (10)
  1. PIPERACILLIN AND TAZOBACTAM [Concomitant]
     Active Substance: PIPERACILLIN SODIUM\TAZOBACTAM SODIUM
     Indication: ANTI-INFECTIVE THERAPY
     Dosage: UNK
     Route: 065
  2. PAROXETINE. [Suspect]
     Active Substance: PAROXETINE
     Indication: ANXIETY
     Dosage: 20 MILLIGRAM, Q.H.S.
     Route: 048
  3. BAYASPIRIN [Concomitant]
     Active Substance: ASPIRIN
     Indication: BLOOD PRESSURE MEASUREMENT
     Dosage: 100 MILLIGRAM, Q.H.S.
     Route: 065
  4. CEFTIZOXIME [Concomitant]
     Active Substance: CEFTIZOXIME
     Indication: ANTI-INFECTIVE THERAPY
     Dosage: UNK
     Route: 065
  5. RIFAMPIN. [Interacting]
     Active Substance: RIFAMPIN
     Indication: STAPHYLOCOCCAL INFECTION
     Dosage: UNK
     Route: 065
  6. LINEZOLID. [Interacting]
     Active Substance: LINEZOLID
     Indication: ENDOCARDITIS STAPHYLOCOCCAL
     Dosage: 600 MG, BID
     Route: 042
  7. AMIKACIN SULFATE. [Interacting]
     Active Substance: AMIKACIN SULFATE
     Indication: STAPHYLOCOCCAL INFECTION
     Dosage: UNK
     Route: 065
  8. NORVASC [Concomitant]
     Active Substance: AMLODIPINE BESYLATE
     Indication: BLOOD PRESSURE MEASUREMENT
     Dosage: 5 MILLIGRAM, Q.AM
     Route: 048
  9. AMBIEN [Concomitant]
     Active Substance: ZOLPIDEM TARTRATE
     Indication: ANXIETY
     Dosage: 10 MILLIGRAM, Q.H.S.
     Route: 065
  10. CEFTRIAXONE AND TAZOBACTAM [Concomitant]
     Indication: STAPHYLOCOCCAL INFECTION
     Dosage: UNK
     Route: 065

REACTIONS (15)
  - Cardiac valve vegetation [Recovering/Resolving]
  - Anxiety [Recovered/Resolved]
  - Blood pressure increased [Recovered/Resolved]
  - Hallucination [Recovered/Resolved]
  - Persecutory delusion [Recovered/Resolved]
  - Delirium [Recovered/Resolved]
  - Renal injury [Recovered/Resolved]
  - Fear [Recovered/Resolved]
  - Clonus [Recovered/Resolved]
  - Serotonin syndrome [Recovered/Resolved]
  - Mental disorder [Unknown]
  - Gastrointestinal disorder [Recovered/Resolved]
  - Drug interaction [Recovered/Resolved]
  - Tremor [Recovered/Resolved]
  - Pyrexia [Recovered/Resolved]
